FAERS Safety Report 16078805 (Version 1)
Quarter: 2019Q1

REPORT INFORMATION
  Report Type: Spontaneous
  Country: US (occurrence: US)
  Receive Date: 20190315
  Receipt Date: 20190315
  Transmission Date: 20190418
  Serious: No
  Sender: FDA-Public Use
  Company Number: US-PERRIGO-18US002509

PATIENT
  Age: 57 Year
  Sex: Female
  Weight: 56.69 kg

DRUGS (3)
  1. PROMETHAZINE [Concomitant]
     Active Substance: PROMETHAZINE\PROMETHAZINE HYDROCHLORIDE
     Indication: NAUSEA
     Dosage: 1 DF, Q6H, PRN
     Route: 048
  2. SCOPOLAMINE [Suspect]
     Active Substance: SCOPOLAMINE
     Indication: PROPHYLAXIS AGAINST MOTION SICKNESS
     Dosage: 1 MG, Q72H
     Route: 062
     Dates: start: 20180224, end: 20180302
  3. ESTRACE [Concomitant]
     Active Substance: ESTRADIOL
     Indication: HOT FLUSH
     Dosage: 1 MG, QD
     Route: 048

REACTIONS (15)
  - Pharyngeal oedema [Recovered/Resolved]
  - Abdominal discomfort [Recovering/Resolving]
  - Hypersensitivity [Recovering/Resolving]
  - Tremor [Recovered/Resolved]
  - Drug withdrawal syndrome [Recovered/Resolved]
  - Dry throat [Recovering/Resolving]
  - Dysphonia [Not Recovered/Not Resolved]
  - Palpitations [Recovered/Resolved]
  - Decreased appetite [Recovering/Resolving]
  - Ear discomfort [Not Recovered/Not Resolved]
  - Fatigue [Recovering/Resolving]
  - Dizziness [Recovering/Resolving]
  - Nausea [Recovering/Resolving]
  - Eye movement disorder [Not Recovered/Not Resolved]
  - Dry mouth [Recovering/Resolving]

NARRATIVE: CASE EVENT DATE: 2018
